FAERS Safety Report 14778754 (Version 1)
Quarter: 2018Q2

REPORT INFORMATION
  Report Type: Spontaneous
  Country: IT (occurrence: IT)
  Receive Date: 20180419
  Receipt Date: 20180419
  Transmission Date: 20180711
  Serious: Yes (Other)
  Sender: FDA-Public Use
  Company Number: IT-JNJFOC-20180418517

PATIENT

DRUGS (3)
  1. INFLIXIMAB, RECOMBINANT [Suspect]
     Active Substance: INFLIXIMAB
     Indication: INFLAMMATORY BOWEL DISEASE
     Route: 042
  2. INFLIXIMAB, RECOMBINANT [Suspect]
     Active Substance: INFLIXIMAB
     Indication: JUVENILE IDIOPATHIC ARTHRITIS
     Route: 042
  3. INFLIXIMAB, RECOMBINANT [Suspect]
     Active Substance: INFLIXIMAB
     Indication: COLITIS ULCERATIVE
     Route: 042

REACTIONS (7)
  - Pneumonia [Recovered/Resolved]
  - Scrotal abscess [Recovered/Resolved]
  - Anaphylactoid reaction [Recovered/Resolved]
  - Cytomegalovirus infection [Recovered/Resolved]
  - Lupus-like syndrome [Not Recovered/Not Resolved]
  - Peritonsillar abscess [Recovered/Resolved]
  - Sepsis [Recovered/Resolved]
